FAERS Safety Report 13346657 (Version 2)
Quarter: 2017Q2

REPORT INFORMATION
  Report Type: Spontaneous
  Country: US (occurrence: US)
  Receive Date: 20170317
  Receipt Date: 20170427
  Transmission Date: 20170830
  Serious: Yes (Hospitalization, Other)
  Sender: FDA-Public Use
  Company Number: US-PFIZER INC-2017111130

PATIENT
  Age: 50 Year
  Sex: Male

DRUGS (3)
  1. GABAPENTIN. [Suspect]
     Active Substance: GABAPENTIN
     Indication: NECK PAIN
     Dosage: 400 MG, 3X/DAY
     Dates: start: 201701
  2. REVATIO [Suspect]
     Active Substance: SILDENAFIL CITRATE
     Indication: PULMONARY ARTERIAL HYPERTENSION
     Dosage: 20 MG, 3X/DAY
     Dates: start: 2009
  3. VIMPAT [Suspect]
     Active Substance: LACOSAMIDE
     Dosage: 100 MG, 2X/DAY
     Dates: start: 201610

REACTIONS (3)
  - Seizure [Not Recovered/Not Resolved]
  - Drug use disorder [Not Recovered/Not Resolved]
  - Pain [Unknown]

NARRATIVE: CASE EVENT DATE: 201611
